FAERS Safety Report 5220697-6 (Version None)
Quarter: 2007Q1

REPORT INFORMATION
  Report Type: 
  Country: None (occurrence: None)
  Receive Date: 20070125
  Receipt Date: 20070125
  Transmission Date: 20070707
  Serious: Yes (Life-Threatening)
  Sender: FDA-Public Use
  Company Number: None

PATIENT
  Age: 42 Year
  Sex: Female
  Weight: 65.318 kg

DRUGS (2)
  1. TAPAZOLE [Suspect]
     Indication: BASEDOW'S DISEASE
     Dosage: 10 MG BID
  2. PROPRANOLOL [Concomitant]

REACTIONS (3)
  - ALANINE AMINOTRANSFERASE INCREASED [None]
  - ASPARTATE AMINOTRANSFERASE INCREASED [None]
  - BLOOD BILIRUBIN INCREASED [None]
